FAERS Safety Report 25869226 (Version 1)
Quarter: 2025Q4

REPORT INFORMATION
  Report Type: Spontaneous
  Country: JP (occurrence: JP)
  Receive Date: 20251001
  Receipt Date: 20251001
  Transmission Date: 20260117
  Serious: Yes (Other)
  Sender: AMGEN
  Company Number: JP-AMGEN-JPNSP2025092352

PATIENT
  Age: 80 Year
  Sex: Male

DRUGS (9)
  1. IMDELLTRA [Suspect]
     Active Substance: TARLATAMAB-DLLE
     Indication: Small cell lung cancer
     Dosage: 1 MILLIGRAM, DRIP INFUSION, FIRST DOSE
     Route: 040
     Dates: start: 20250502
  2. IMDELLTRA [Suspect]
     Active Substance: TARLATAMAB-DLLE
     Dosage: 10 MILLIGRAM, DRIP INFUSION DAY 8 SECOND DOSE
     Route: 040
     Dates: start: 20250509
  3. IMDELLTRA [Suspect]
     Active Substance: TARLATAMAB-DLLE
     Dosage: UNK, THIRD DOSE
     Route: 040
     Dates: start: 2025
  4. IMDELLTRA [Suspect]
     Active Substance: TARLATAMAB-DLLE
     Dosage: UNK, FOURTH DOSE
     Route: 040
     Dates: start: 2025
  5. IMDELLTRA [Suspect]
     Active Substance: TARLATAMAB-DLLE
     Dosage: UNK, FIFTH DOSE
     Route: 040
     Dates: start: 2025
  6. IMDELLTRA [Suspect]
     Active Substance: TARLATAMAB-DLLE
     Dosage: UNK, SIXTH DOSE
     Route: 040
     Dates: start: 2025
  7. IMDELLTRA [Suspect]
     Active Substance: TARLATAMAB-DLLE
     Dosage: UNK, SEVENTH DOSE
     Route: 040
     Dates: start: 2025
  8. IMDELLTRA [Suspect]
     Active Substance: TARLATAMAB-DLLE
     Dosage: UNK, EIGHT DOSE
     Route: 040
     Dates: start: 2025
  9. IMDELLTRA [Suspect]
     Active Substance: TARLATAMAB-DLLE
     Dosage: UNK, NINETH DOSE
     Route: 040
     Dates: start: 2025, end: 2025

REACTIONS (4)
  - Small cell lung cancer [Unknown]
  - Heart rate increased [Recovered/Resolved]
  - Diarrhoea [Recovered/Resolved]
  - Pyrexia [Unknown]

NARRATIVE: CASE EVENT DATE: 20250503
